FAERS Safety Report 22126965 (Version 1)
Quarter: 2023Q1

REPORT INFORMATION
  Report Type: Spontaneous
  Country: US (occurrence: US)
  Receive Date: 20230322
  Receipt Date: 20230322
  Transmission Date: 20230418
  Serious: Yes (Other)
  Sender: FDA-Public Use
  Company Number: US-TEVA-2023-US-2867580

PATIENT
  Sex: Male

DRUGS (3)
  1. SULINDAC [Suspect]
     Active Substance: SULINDAC
     Indication: Neuroblastoma
     Dosage: 4 MG/KG DAILY;
     Route: 065
  2. CYCLOPHOSPHAMIDE [Suspect]
     Active Substance: CYCLOPHOSPHAMIDE
     Indication: Neuroblastoma
     Dosage: 75 MG/M2 DAILY; DAYS 22-41
     Route: 048
  3. ETOPOSIDE [Suspect]
     Active Substance: ETOPOSIDE
     Indication: Neuroblastoma
     Dosage: 50 MG/M2 DAILY; DAYS 1-21
     Route: 048

REACTIONS (2)
  - Haematotoxicity [Unknown]
  - Drug ineffective [Unknown]
